FAERS Safety Report 24902239 (Version 1)
Quarter: 2025Q1

REPORT INFORMATION
  Report Type: Spontaneous
  Country: CA (occurrence: CA)
  Receive Date: 20250130
  Receipt Date: 20250130
  Transmission Date: 20250408
  Serious: Yes (Other)
  Sender: CELLTRION
  Company Number: CA-CELLTRION INC.-2024CA023682

PATIENT

DRUGS (3)
  1. STEQEYMA [Suspect]
     Active Substance: USTEKINUMAB-STBA
     Indication: Colitis ulcerative
     Route: 042
     Dates: start: 20240930
  2. STEQEYMA [Suspect]
     Active Substance: USTEKINUMAB-STBA
     Indication: Colitis ulcerative
     Route: 058
     Dates: start: 20240930
  3. STEQEYMA [Suspect]
     Active Substance: USTEKINUMAB-STBA
     Route: 058
     Dates: start: 20241125

REACTIONS (8)
  - Haematochezia [Unknown]
  - Mucous stools [Unknown]
  - Flatulence [Unknown]
  - Abdominal pain [Unknown]
  - Faecal calprotectin increased [Unknown]
  - Symptom recurrence [Unknown]
  - Therapeutic response delayed [Unknown]
  - Off label use [Unknown]

NARRATIVE: CASE EVENT DATE: 20240923
